FAERS Safety Report 8449970-5 (Version None)
Quarter: 2012Q2

REPORT INFORMATION
  Report Type: 
  Country: None (occurrence: None)
  Receive Date: 20120614
  Receipt Date: 20120614
  Transmission Date: 20120825
  Serious: Yes (Other)
  Sender: FDA-Public Use
  Company Number: None

PATIENT
  Age: 71 Year
  Sex: Female

DRUGS (3)
  1. HEART MEDICATIONS [Concomitant]
  2. STATIN [Concomitant]
  3. COPAXONE [Suspect]
     Indication: MULTIPLE SCLEROSIS
     Dosage: ONCE A DAY, OTHER
     Route: 050

REACTIONS (3)
  - INJECTION SITE HAEMORRHAGE [None]
  - INJECTION SITE MASS [None]
  - INJECTION SITE ERYTHEMA [None]
